FAERS Safety Report 8274584-X (Version None)
Quarter: 2012Q2

REPORT INFORMATION
  Report Type: 
  Country: None (occurrence: None)
  Receive Date: 20120411
  Receipt Date: 20120403
  Transmission Date: 20120825
  Serious: Yes (Death, Hospitalization)
  Sender: FDA-Public Use
  Company Number: US-GLAXOSMITHKLINE-A0903042A

PATIENT
  Age: 77 Year
  Sex: Male

DRUGS (1)
  1. AVANDIA [Suspect]
     Indication: DIABETES MELLITUS
     Dosage: 4MG PER DAY
     Route: 048
     Dates: end: 20100504

REACTIONS (4)
  - VENTRICULAR FIBRILLATION [None]
  - TRANSIENT ISCHAEMIC ATTACK [None]
  - RENAL FAILURE [None]
  - MYOCARDIAL INFARCTION [None]
